FAERS Safety Report 8553922-4 (Version None)
Quarter: 2012Q3

REPORT INFORMATION
  Report Type: 
  Country: None (occurrence: None)
  Receive Date: 20120731
  Receipt Date: 20120723
  Transmission Date: 20120928
  Serious: Yes (Other)
  Sender: FDA-Public Use
  Company Number: FR-MSD-1207FRA011774

PATIENT

DRUGS (6)
  1. GENTAMICIN [Suspect]
     Indication: OSTEOMYELITIS
     Dosage: 240 MG, QD
     Route: 042
     Dates: start: 20120305, end: 20120320
  2. DEBRIDAT [Concomitant]
     Route: 048
  3. VANCOMYCIN [Suspect]
     Indication: OSTEOMYELITIS
     Dosage: 1 G, BID
     Route: 042
     Dates: start: 20120305, end: 20120320
  4. TIENAM 500MG/500MG, POUDRE POUR PERFUSION [Suspect]
     Dosage: 1 G, TID
     Route: 042
     Dates: start: 20120229, end: 20120320
  5. TIORFAN [Concomitant]
     Indication: OSTEOMYELITIS
     Route: 048
  6. SPASFON [Concomitant]
     Route: 048

REACTIONS (1)
  - CHOLESTASIS [None]
